FAERS Safety Report 24166451 (Version 1)
Quarter: 2024Q3

REPORT INFORMATION
  Report Type: Spontaneous
  Country: MX (occurrence: MX)
  Receive Date: 20240802
  Receipt Date: 20240802
  Transmission Date: 20241017
  Serious: Yes (Hospitalization, Other)
  Sender: GLAXOSMITHKLINE
  Company Number: MX-GLAXOSMITHKLINE-MX2024GSK095275

PATIENT

DRUGS (12)
  1. ALBUTEROL [Suspect]
     Active Substance: ALBUTEROL
     Indication: Asthma
     Dosage: UNK
     Route: 055
  2. OXYGEN [Concomitant]
     Active Substance: OXYGEN
     Indication: Asthmatic crisis
     Dosage: UNK
  3. MAGNESIUM SULFATE [Concomitant]
     Active Substance: MAGNESIUM SULFATE\MAGNESIUM SULFATE HEPTAHYDRATE
     Indication: Asthmatic crisis
     Dosage: UNK
     Route: 042
  4. LEVOFLOXACIN [Concomitant]
     Active Substance: LEVOFLOXACIN
     Indication: Antibiotic therapy
     Dosage: 750 MG, 1D
     Route: 042
  5. MIDAZOLAM [Concomitant]
     Active Substance: MIDAZOLAM
     Indication: Asthmatic crisis
     Dosage: 0.4 MG/KG /HR
  6. MIDAZOLAM [Concomitant]
     Active Substance: MIDAZOLAM
     Indication: Sedation
  7. PROPOFOL [Concomitant]
     Active Substance: PROPOFOL
     Indication: Asthmatic crisis
     Dosage: 3.7 MG/KG/H
  8. PROPOFOL [Concomitant]
     Active Substance: PROPOFOL
     Indication: Sedation
  9. AMINOPHYLLINE [Concomitant]
     Active Substance: AMINOPHYLLINE
     Indication: Asthmatic crisis
     Dosage: 0.5 MG/KG/HR
  10. CISATRACURIUM [Concomitant]
     Active Substance: CISATRACURIUM
     Indication: Asthmatic crisis
     Dosage: UNK, INFUSION
  11. KETAMINE [Concomitant]
     Active Substance: KETAMINE
     Indication: Asthmatic crisis
     Dosage: UNK
  12. SEVOFLURANE [Concomitant]
     Active Substance: SEVOFLURANE
     Indication: Asthmatic crisis
     Dosage: UNK
     Route: 055

REACTIONS (3)
  - Drug ineffective [Unknown]
  - Treatment noncompliance [Unknown]
  - Acute kidney injury [Unknown]
